FAERS Safety Report 16860792 (Version 1)
Quarter: 2019Q3

REPORT INFORMATION
  Report Type: Spontaneous
  Country: AU (occurrence: AU)
  Receive Date: 20190927
  Receipt Date: 20190927
  Transmission Date: 20191005
  Serious: Yes (Other)
  Sender: FDA-Public Use
  Company Number: AU-MYLANLABS-2019M1089574

PATIENT
  Age: 13 Year
  Sex: Male

DRUGS (2)
  1. ENDEP [Suspect]
     Active Substance: AMITRIPTYLINE HYDROCHLORIDE
     Indication: AGGRESSION
     Dosage: UNK
  2. MELATONIN [Concomitant]
     Active Substance: MELATONIN
     Dosage: UNK

REACTIONS (6)
  - Mydriasis [Unknown]
  - Product use issue [Unknown]
  - Oppositional defiant disorder [Unknown]
  - Off label use [Unknown]
  - Nausea [Unknown]
  - Aggression [Unknown]
